FAERS Safety Report 15499735 (Version 1)
Quarter: 2018Q4

REPORT INFORMATION
  Report Type: Spontaneous
  Country: US (occurrence: US)
  Receive Date: 20181008
  Receipt Date: 20181008
  Transmission Date: 20190205
  Serious: Yes (Life-Threatening, Hospitalization, Disabling, Other)
  Sender: FDA-Public Use
  Company Number: None

PATIENT
  Age: 73 Year
  Sex: Male
  Weight: 88.65 kg

DRUGS (15)
  1. TRULICITY [Suspect]
     Active Substance: DULAGLUTIDE
     Indication: TYPE 2 DIABETES MELLITUS
     Dosage: ?          QUANTITY:1 INJECTION(S);OTHER FREQUENCY:ONCE A WEEK;?
     Route: 058
     Dates: start: 20170511, end: 20180910
  2. MOBIC [Concomitant]
     Active Substance: MELOXICAM
  3. LISINOPRIL. [Concomitant]
     Active Substance: LISINOPRIL
  4. ZOCOR [Concomitant]
     Active Substance: SIMVASTATIN
  5. BRIMONIDINE [Concomitant]
     Active Substance: BRIMONIDINE TARTRATE
  6. DOXYCYCLINE. [Concomitant]
     Active Substance: DOXYCYCLINE
  7. DORZALOAMIDE [Concomitant]
  8. TYLENOL [Concomitant]
     Active Substance: ACETAMINOPHEN
  9. METFORMIN [Concomitant]
     Active Substance: METFORMIN HYDROCHLORIDE
  10. METOPROLOL. [Concomitant]
     Active Substance: METOPROLOL
  11. NORVASC [Concomitant]
     Active Substance: AMLODIPINE BESYLATE
  12. PROTONIX [Concomitant]
     Active Substance: PANTOPRAZOLE SODIUM
  13. CELEXA [Concomitant]
     Active Substance: CITALOPRAM HYDROBROMIDE
  14. FINESTERIDE [Concomitant]
     Active Substance: FINASTERIDE
  15. ASA 81MG [Concomitant]

REACTIONS (10)
  - Thrombosis [None]
  - Hyperhidrosis [None]
  - Respiratory failure [None]
  - Abdominal pain [None]
  - Vomiting [None]
  - Cardiac failure [None]
  - Abscess bacterial [None]
  - Atrial fibrillation [None]
  - Renal failure [None]
  - Pancreatitis necrotising [None]

NARRATIVE: CASE EVENT DATE: 20180917
